FAERS Safety Report 5796165-X (Version None)
Quarter: 2008Q3

REPORT INFORMATION
  Report Type: 
  Country: None (occurrence: None)
  Receive Date: 20080701
  Receipt Date: 20080616
  Transmission Date: 20090109
  Serious: Yes (Hospitalization)
  Sender: FDA-Public Use
  Company Number: FR-ELI_LILLY_AND_COMPANY-FR200804005980

PATIENT
  Age: 78 Year
  Sex: Female
  Weight: 72 kg

DRUGS (9)
  1. FORTEO [Suspect]
     Indication: OSTEOPOROSIS
     Dosage: 20 UG, DAILY (1/D)
     Route: 058
     Dates: start: 20070507
  2. NIFEDIPINE [Concomitant]
     Dosage: 1 D/F, DAILY (1/D)
  3. BEFIZAL [Concomitant]
     Dosage: 1 D/F, DAILY (1/D)
  4. ASPIRIN [Concomitant]
     Dosage: 1 D/F, DAILY (1/D)
  5. IRBESARTAN [Concomitant]
     Dosage: 1 D/F, DAILY (1/D)
  6. CELECTOL [Concomitant]
     Dosage: 1 D/F, DAILY (1/D)
  7. STAGID [Concomitant]
     Dosage: 0.5 D/F, 3/D
  8. RAMIPRIL [Concomitant]
     Dosage: 2 D/F, DAILY (1/D)
  9. ACETAMINOPHEN [Concomitant]
     Dosage: 3 D/F, DAILY (1/D)

REACTIONS (2)
  - FALL [None]
  - ULNA FRACTURE [None]
